APPROVED DRUG PRODUCT: TRETINOIN
Active Ingredient: TRETINOIN
Strength: 0.05%
Dosage Form/Route: CREAM;TOPICAL
Application: A075265 | Product #001 | TE Code: AB1
Applicant: PADAGIS US LLC
Approved: Dec 24, 1998 | RLD: No | RS: No | Type: RX